FAERS Safety Report 8296114-9 (Version None)
Quarter: 2012Q2

REPORT INFORMATION
  Report Type: 
  Country: None (occurrence: None)
  Receive Date: 20120418
  Receipt Date: 20120410
  Transmission Date: 20120825
  Serious: Yes (Hospitalization)
  Sender: FDA-Public Use
  Company Number: US-GLAXOSMITHKLINE-A0973884A

PATIENT
  Age: 56 Year
  Sex: Male

DRUGS (1)
  1. TYKERB [Suspect]
     Indication: GASTRIC CANCER
     Dosage: 1250MG PER DAY
     Route: 048

REACTIONS (2)
  - FEELING ABNORMAL [None]
  - CONSTIPATION [None]
